FAERS Safety Report 5749768-2 (Version None)
Quarter: 2008Q2

REPORT INFORMATION
  Report Type: 
  Country: None (occurrence: None)
  Receive Date: 20080527
  Receipt Date: 20080526
  Transmission Date: 20081010
  Serious: Yes (Hospitalization)
  Sender: FDA-Public Use
  Company Number: US-BAYER-200815158NA

PATIENT
  Sex: Female

DRUGS (2)
  1. AVELOX [Suspect]
     Indication: DRUG USE FOR UNKNOWN INDICATION
     Route: 048
     Dates: start: 20080201, end: 20080201
  2. CODEINE SUL TAB [Concomitant]
     Dates: end: 20080201

REACTIONS (2)
  - HEPATIC ENZYME INCREASED [None]
  - VOMITING [None]
